FAERS Safety Report 4398850-3 (Version None)
Quarter: 2004Q3

REPORT INFORMATION
  Report Type: 
  Country: None (occurrence: None)
  Receive Date: 20040712
  Receipt Date: 20040701
  Transmission Date: 20050211
  Serious: Yes (Death)
  Sender: FDA-Public Use
  Company Number: US-JNJFOC-20040701308

PATIENT
  Age: 79 Year
  Sex: Female

DRUGS (6)
  1. RISPERDAL [Suspect]
     Indication: ACUTE PSYCHOSIS
     Dosage: 2 MG, IN 1 DAY, ORAL; SEE IMAGE
     Route: 048
     Dates: start: 20040206
  2. RISPERDAL [Suspect]
     Indication: ACUTE PSYCHOSIS
     Dosage: 2 MG, IN 1 DAY, ORAL; SEE IMAGE
     Route: 048
     Dates: start: 20040219
  3. DIGOXIN [Concomitant]
  4. LASIX [Concomitant]
  5. TENORMIN [Concomitant]
  6. ZOLOFT [Concomitant]

REACTIONS (2)
  - BLOOD CREATININE INCREASED [None]
  - BLOOD UREA INCREASED [None]
